FAERS Safety Report 9219705 (Version 1)
Quarter: 2013Q1

REPORT INFORMATION
  Report Type: Spontaneous
  Country: US (occurrence: None)
  Receive Date: 20120830
  Receipt Date: 20120830
  Transmission Date: 20140127
  Serious: Yes (Other)
  Sender: FDA-Public Use
  Company Number: PHEH2012US012265

PATIENT
  Age: 65 Year
  Sex: Female
  Weight: 130 kg

DRUGS (4)
  1. EXFORGE (VALSARTAN, AMLODIPINE) UNKNOWN [Suspect]
  2. HYALURONIC ACID [Suspect]
     Dates: start: 20120425
  3. LIDOCAINE (LIDOCAINE) [Suspect]
     Dates: start: 20120425
  4. DYSPORT (BOTULINUM TOXIN TYPE A) (BOTULINUM TOXIN TYPE A) [Suspect]
     Dates: start: 20111229

REACTIONS (4)
  - Angioedema [None]
  - Speech disorder [None]
  - Injection site mass [None]
  - Swelling [None]
